FAERS Safety Report 7243401-9 (Version None)
Quarter: 2011Q1

REPORT INFORMATION
  Report Type: 
  Country: None (occurrence: None)
  Receive Date: 20110125
  Receipt Date: 20110112
  Transmission Date: 20110831
  Serious: Yes (Other)
  Sender: FDA-Public Use
  Company Number: JP-ELI_LILLY_AND_COMPANY-JP201101003206

PATIENT
  Age: 72 Year
  Sex: Female

DRUGS (1)
  1. GEMZAR [Suspect]
     Indication: BILE DUCT CANCER
     Dosage: 1300 MG, OTHER
     Route: 042
     Dates: start: 20080101, end: 20090201

REACTIONS (3)
  - FISTULA [None]
  - PYREXIA [None]
  - C-REACTIVE PROTEIN INCREASED [None]
